FAERS Safety Report 7182933-9 (Version None)
Quarter: 2010Q4

REPORT INFORMATION
  Report Type: 
  Country: None (occurrence: None)
  Receive Date: 20101209
  Receipt Date: 20101201
  Transmission Date: 20110411
  Serious: Yes (Death, Other)
  Sender: FDA-Public Use
  Company Number: 201010AGG00959

PATIENT
  Sex: Female

DRUGS (13)
  1. ANGIOMAX [Suspect]
     Indication: ACUTE MYOCARDIAL INFARCTION
     Dosage: 144.4 MG SOLUTION FOR IV INFUSION INTRAVENOUS (NOT OTHERWISE SPECIFIED)
     Route: 042
     Dates: start: 20100924, end: 20100924
  2. AGGRASTAT [Suspect]
     Indication: ACUTE MYOCARDIAL INFARCTION
     Dosage: INTRAVENOUS (NOT OTHERWISE SPECIFIED)
     Route: 042
     Dates: start: 20100924, end: 20100924
  3. FLECTADOL /00002703/ (ACETYLSALICYLATE LYSINE) [Suspect]
     Indication: ACUTE MYOCARDIAL INFARCTION
     Dosage: 300 MG INTRAVENOUS (NOT OTHERWISE SPECIFIED)
     Route: 042
     Dates: start: 20100924, end: 20100924
  4. DOPAMINE [Concomitant]
  5. OMEPRAZOLE [Concomitant]
  6. ALLOPURINOL [Concomitant]
  7. PREDNISONE [Concomitant]
  8. FERROUS SULFATE [Concomitant]
  9. HYDROXYCHLOROQUINE SULFATE [Concomitant]
  10. SIMVASTATIN [Concomitant]
  11. AMIODARONE HYDROCHLORIDE [Concomitant]
  12. ASPIRIN [Concomitant]
  13. RAMIPRIL [Concomitant]

REACTIONS (2)
  - CARDIOGENIC SHOCK [None]
  - RESPIRATORY TRACT HAEMORRHAGE [None]
